FAERS Safety Report 10053999 (Version 1)
Quarter: 2014Q2

REPORT INFORMATION
  Report Type: Spontaneous
  Country: JP (occurrence: JP)
  Receive Date: 20140402
  Receipt Date: 20140402
  Transmission Date: 20141212
  Serious: Yes (Other)
  Sender: FDA-Public Use
  Company Number: JP-PFIZER INC-2014092068

PATIENT
  Age: 81 Year
  Sex: Female

DRUGS (1)
  1. LYRICA [Suspect]
     Indication: SCIATICA
     Dosage: 75 MG, UNK
     Route: 048

REACTIONS (5)
  - Gait disturbance [Unknown]
  - Activities of daily living impaired [Unknown]
  - Diplopia [Unknown]
  - Vision blurred [Unknown]
  - Anxiety [Unknown]
